FAERS Safety Report 11255671 (Version 7)
Quarter: 2015Q4

REPORT INFORMATION
  Report Type: Spontaneous
  Country: JP (occurrence: JP)
  Receive Date: 20150709
  Receipt Date: 20151224
  Transmission Date: 20160304
  Serious: Yes (Death, Life-Threatening, Disabling, Other)
  Sender: FDA-Public Use
  Company Number: JP-ASTELLAS-2015JP014363

PATIENT
  Age: 61 Year
  Sex: Male
  Weight: 56 kg

DRUGS (36)
  1. PROGRAF [Suspect]
     Active Substance: TACROLIMUS\TACROLIMUS ANHYDROUS
     Route: 048
  2. PROGRAF [Suspect]
     Active Substance: TACROLIMUS\TACROLIMUS ANHYDROUS
     Route: 048
     Dates: start: 20150623, end: 20150626
  3. ENDOXAN                            /00021102/ [Suspect]
     Active Substance: CYCLOPHOSPHAMIDE
     Route: 042
     Dates: start: 20150226, end: 20150226
  4. ENDOXAN                            /00021102/ [Suspect]
     Active Substance: CYCLOPHOSPHAMIDE
     Route: 042
     Dates: start: 20150312, end: 20150312
  5. PREDNISOLONE. [Concomitant]
     Active Substance: PREDNISOLONE
     Indication: DERMATOMYOSITIS
     Dosage: 60 MG (1MG/KG/DAY), ONCE DAILY
     Route: 065
     Dates: start: 20141222
  6. PREDNISOLONE. [Concomitant]
     Active Substance: PREDNISOLONE
     Route: 065
  7. CRAVIT [Concomitant]
     Active Substance: LEVOFLOXACIN
     Indication: PSOAS ABSCESS
     Route: 042
     Dates: start: 20150616, end: 20150628
  8. CEFTRIAXONE. [Concomitant]
     Active Substance: CEFTRIAXONE
     Indication: PSOAS ABSCESS
     Route: 042
     Dates: start: 20150629, end: 20150713
  9. PROGRAF [Suspect]
     Active Substance: TACROLIMUS\TACROLIMUS ANHYDROUS
     Route: 048
     Dates: start: 20150627, end: 20150629
  10. ENDOXAN                            /00021102/ [Suspect]
     Active Substance: CYCLOPHOSPHAMIDE
     Route: 042
     Dates: start: 20150110, end: 20150110
  11. ISONARIF [Concomitant]
     Active Substance: ISONIAZID\RIFAMPIN
     Indication: LATENT TUBERCULOSIS
     Route: 048
     Dates: start: 20141222, end: 20150701
  12. DIFLUCAN [Concomitant]
     Active Substance: FLUCONAZOLE
     Indication: OESOPHAGEAL CANDIDIASIS
     Route: 048
     Dates: start: 20150220, end: 20150701
  13. CHOREITO [Concomitant]
     Indication: CYSTITIS
     Route: 048
     Dates: start: 20150418, end: 20150701
  14. ENDOXAN                            /00021102/ [Suspect]
     Active Substance: CYCLOPHOSPHAMIDE
     Route: 042
     Dates: start: 20150518, end: 20150518
  15. MEROPEN                            /01250502/ [Suspect]
     Active Substance: MEROPENEM
     Indication: SEPSIS
     Route: 042
     Dates: start: 20150610, end: 20150615
  16. MEROPEN                            /01250502/ [Suspect]
     Active Substance: MEROPENEM
     Indication: PSOAS ABSCESS
  17. MEDROL [Suspect]
     Active Substance: METHYLPREDNISOLONE
     Indication: INTERSTITIAL LUNG DISEASE
     Dosage: UNK UNK, THRICE DAILY
     Route: 048
     Dates: start: 20141222, end: 20150721
  18. ENDOXAN                            /00021102/ [Suspect]
     Active Substance: CYCLOPHOSPHAMIDE
     Indication: INTERSTITIAL LUNG DISEASE
     Route: 042
     Dates: start: 20141224, end: 20141224
  19. ENDOXAN                            /00021102/ [Suspect]
     Active Substance: CYCLOPHOSPHAMIDE
     Route: 042
     Dates: start: 20150328, end: 20150328
  20. PYDOXAL [Concomitant]
     Active Substance: PYRIDOXAL
     Indication: LATENT TUBERCULOSIS
     Dosage: UNK UNK, UNKNOWN FREQ.
     Route: 048
     Dates: start: 20141222, end: 20150701
  21. MAGMITT [Concomitant]
     Active Substance: MAGNESIUM OXIDE
     Indication: CONSTIPATION
     Route: 048
     Dates: start: 20141222, end: 20150701
  22. MAINTATE [Concomitant]
     Active Substance: BISOPROLOL FUMARATE
     Indication: ATRIAL FIBRILLATION
     Route: 048
     Dates: start: 20150127, end: 20150701
  23. BROTIZOLAM [Concomitant]
     Active Substance: BROTIZOLAM
     Indication: INSOMNIA
     Dosage: 0.25 MG, ONCE DAILY
     Route: 048
     Dates: start: 20141222, end: 20150701
  24. ENDOXAN                            /00021102/ [Suspect]
     Active Substance: CYCLOPHOSPHAMIDE
     Route: 042
     Dates: start: 20150127, end: 20150127
  25. METRONIDAZOLE. [Suspect]
     Active Substance: METRONIDAZOLE
     Indication: PSOAS ABSCESS
     Route: 042
     Dates: start: 20150616, end: 20150623
  26. PROGRAF [Suspect]
     Active Substance: TACROLIMUS\TACROLIMUS ANHYDROUS
     Indication: INTERSTITIAL LUNG DISEASE
     Route: 048
     Dates: start: 20141222
  27. PROGRAF [Suspect]
     Active Substance: TACROLIMUS\TACROLIMUS ANHYDROUS
     Route: 048
  28. ENDOXAN                            /00021102/ [Suspect]
     Active Substance: CYCLOPHOSPHAMIDE
     Route: 042
     Dates: start: 20150219, end: 20150219
  29. PRAVASTATIN                        /00880402/ [Concomitant]
     Active Substance: PRAVASTATIN SODIUM
     Indication: DYSLIPIDAEMIA
     Route: 048
     Dates: start: 20141222, end: 20150701
  30. ENDOXAN                            /00021102/ [Suspect]
     Active Substance: CYCLOPHOSPHAMIDE
     Indication: DERMATOMYOSITIS
     Dosage: UNK UNK, EVERY 2 WEEKS
     Route: 042
     Dates: start: 20141222
  31. ENDOXAN                            /00021102/ [Suspect]
     Active Substance: CYCLOPHOSPHAMIDE
     Route: 042
     Dates: start: 20150427, end: 20150427
  32. VALIXA [Concomitant]
     Active Substance: VALGANCICLOVIR
     Indication: PNEUMONIA CYTOMEGALOVIRAL
     Route: 048
     Dates: start: 20150611, end: 20150701
  33. BAKTAR [Concomitant]
     Active Substance: SULFAMETHOXAZOLE\TRIMETHOPRIM
     Indication: ANTIFUNGAL PROPHYLAXIS
     Route: 048
     Dates: start: 20150105, end: 20150326
  34. PROGRAF [Suspect]
     Active Substance: TACROLIMUS\TACROLIMUS ANHYDROUS
     Route: 048
     Dates: start: 20150630, end: 20150701
  35. NEXIUM [Concomitant]
     Active Substance: ESOMEPRAZOLE MAGNESIUM
     Indication: GASTROOESOPHAGEAL REFLUX DISEASE
     Route: 048
     Dates: start: 20141222, end: 20150701
  36. FOSAMAC [Concomitant]
     Active Substance: ALENDRONATE SODIUM
     Indication: OSTEOPOROSIS
     Dosage: 35 MG, EVERY WEEK
     Route: 048
     Dates: start: 20141222, end: 20150701

REACTIONS (15)
  - Bone marrow failure [Recovering/Resolving]
  - Sepsis [Recovering/Resolving]
  - Pneumocystis jirovecii pneumonia [Fatal]
  - Cytomegalovirus infection [Recovered/Resolved]
  - Atrial fibrillation [Recovering/Resolving]
  - Diarrhoea [Recovered/Resolved]
  - Intentional overdose [Unknown]
  - Acute kidney injury [Recovering/Resolving]
  - Hepatic function abnormal [Recovered/Resolved]
  - Sepsis [Recovering/Resolving]
  - Psoas abscess [Recovering/Resolving]
  - Oesophageal candidiasis [Recovering/Resolving]
  - Pneumonia [Recovering/Resolving]
  - Cystitis haemorrhagic [Recovered/Resolved]
  - Urosepsis [Recovering/Resolving]

NARRATIVE: CASE EVENT DATE: 20141222
